FAERS Safety Report 17367952 (Version 1)
Quarter: 2020Q1

REPORT INFORMATION
  Report Type: Spontaneous
  Country: US (occurrence: US)
  Receive Date: 20200204
  Receipt Date: 20200204
  Transmission Date: 20200409
  Serious: Yes (Other)
  Sender: FDA-Public Use
  Company Number: US-PFIZER INC-2019436348

PATIENT
  Sex: Female

DRUGS (42)
  1. PROBIOTIC [Concomitant]
     Active Substance: PROBIOTICS NOS
     Indication: DYSPEPSIA
     Dosage: UNK, AS NEEDED
     Dates: start: 2014
  2. ROLAIDS [Concomitant]
     Active Substance: CALCIUM CARBONATE\MAGNESIUM HYDROXIDE
     Indication: ANTACID THERAPY
     Dosage: UNK, AS NEEDED (1 TO 2 TABLETS)
     Dates: start: 2007, end: 2009
  3. MAALOX ANTACID [Concomitant]
     Active Substance: ALUMINUM HYDROXIDE\DIMETHICONE\MAGNESIUM HYDROXIDE
     Indication: ANTACID THERAPY
     Dosage: UNK, AS NEEDED (2 TO 4 TABLE SPOONS)
     Dates: start: 2007, end: 2009
  4. LOSARTAN. [Concomitant]
     Active Substance: LOSARTAN
     Indication: HYPERTENSION
     Dosage: UNK
     Dates: start: 2011
  5. AMLODIPINE [Concomitant]
     Active Substance: AMLODIPINE BESYLATE
     Indication: HYPERTENSION
     Dosage: UNK
     Dates: start: 2018
  6. RANITIDINE. [Concomitant]
     Active Substance: RANITIDINE
     Dosage: UNK
     Dates: start: 2016
  7. DIOVAN [Concomitant]
     Active Substance: VALSARTAN
     Indication: CHRONIC KIDNEY DISEASE
  8. SULFAMETHOXAZOLE [Concomitant]
     Active Substance: SULFAMETHOXAZOLE
     Dosage: UNK
     Dates: start: 2018
  9. CIPROFLOXACIN. [Concomitant]
     Active Substance: CIPROFLOXACIN
     Indication: INFECTION
     Dosage: UNK
     Dates: start: 2007
  10. TRAMADOL. [Concomitant]
     Active Substance: TRAMADOL
     Indication: MUSCULOSKELETAL PAIN
     Dosage: UNK
     Dates: start: 2011
  11. ASPIRIN. [Concomitant]
     Active Substance: ASPIRIN
     Indication: CARDIOVASCULAR EVENT PROPHYLAXIS
     Dosage: UNK
     Dates: end: 2018
  12. FLONASE [Concomitant]
     Active Substance: FLUTICASONE PROPIONATE
     Indication: MULTIPLE ALLERGIES
     Dosage: UNK, AS NEEDED
  13. CEFUROXIME. [Concomitant]
     Active Substance: CEFUROXIME
     Indication: SINUSITIS
     Dosage: UNK
     Dates: start: 2017
  14. SULFAMETHOXAZOLE [Concomitant]
     Active Substance: SULFAMETHOXAZOLE
     Indication: SINUSITIS
     Dosage: UNK
     Dates: start: 2007
  15. AZITHROMYCIN ANHYDROUS. [Concomitant]
     Active Substance: AZITHROMYCIN ANHYDROUS
     Indication: INFECTION
     Dosage: UNK
     Dates: start: 2010, end: 2011
  16. NEXIUM [Suspect]
     Active Substance: ESOMEPRAZOLE MAGNESIUM
     Indication: GASTROOESOPHAGEAL REFLUX DISEASE
     Dosage: UNK
     Dates: start: 2009, end: 2018
  17. NEXIUM 24HR [Suspect]
     Active Substance: ESOMEPRAZOLE MAGNESIUM
     Indication: GASTROOESOPHAGEAL REFLUX DISEASE
     Dosage: UNK
     Dates: end: 2018
  18. NEXIUM 24HR [Suspect]
     Active Substance: ESOMEPRAZOLE MAGNESIUM
     Dosage: 20 MG, 1X/DAY
     Dates: start: 2017, end: 2018
  19. PROTONIX [Suspect]
     Active Substance: PANTOPRAZOLE SODIUM
     Dosage: UNK
  20. ACIPHEX [Suspect]
     Active Substance: RABEPRAZOLE SODIUM
     Dosage: UNK
  21. PEPCID [Concomitant]
     Active Substance: FAMOTIDINE
     Dosage: UNK
     Dates: start: 2017
  22. PEPTO-BISMOL [Concomitant]
     Active Substance: BISMUTH SUBSALICYLATE
     Indication: ANTACID THERAPY
     Dosage: UNK, AS NEEDED (2 TABLE SPOONS)
  23. DOXYCYCLINE. [Concomitant]
     Active Substance: DOXYCYCLINE
     Indication: UPPER RESPIRATORY TRACT INFECTION
     Dosage: UNK
     Dates: start: 2014
  24. ZOCOR [Concomitant]
     Active Substance: SIMVASTATIN
     Indication: BLOOD CHOLESTEROL ABNORMAL
     Dosage: UNK
     Dates: start: 2010
  25. METOPROLOL. [Concomitant]
     Active Substance: METOPROLOL
     Indication: HYPERTENSION
     Dosage: UNK
     Dates: start: 2018
  26. GAS-X [Concomitant]
     Active Substance: DIMETHICONE
     Indication: FLATULENCE
     Dosage: UNK, AS NEEDED
  27. ZANTAC 150 (RANITIDINE HYDROCHLORIDE) [Concomitant]
     Active Substance: RANITIDINE HYDROCHLORIDE
     Dosage: UNK
     Dates: start: 2017
  28. HYDROCHLOROTHIAZIDE. [Concomitant]
     Active Substance: HYDROCHLOROTHIAZIDE
     Indication: HYPERTENSION
     Dosage: UNK
     Dates: start: 2007, end: 2018
  29. XARELTO [Concomitant]
     Active Substance: RIVAROXABAN
     Indication: ATRIAL FIBRILLATION
     Dosage: UNK
     Dates: start: 2018
  30. ALPRAZOLAM. [Concomitant]
     Active Substance: ALPRAZOLAM
     Indication: ANXIETY
     Dosage: UNK
     Dates: start: 2008
  31. OMEPRAZOLE. [Suspect]
     Active Substance: OMEPRAZOLE
     Indication: GASTROOESOPHAGEAL REFLUX DISEASE
     Dosage: 20 MG, 1X/DAY
     Dates: start: 2018
  32. CLARITIN [Concomitant]
     Active Substance: LORATADINE
     Indication: MULTIPLE ALLERGIES
     Dosage: UNK, AS NEEDED
     Dates: end: 2018
  33. SIMVASTATIN. [Concomitant]
     Active Substance: SIMVASTATIN
     Indication: BLOOD CHOLESTEROL ABNORMAL
     Dosage: UNK
     Dates: start: 2010, end: 2018
  34. PREVACID [Suspect]
     Active Substance: LANSOPRAZOLE
     Dosage: UNK
  35. PANTOPRAZOLE [Suspect]
     Active Substance: PANTOPRAZOLE
     Indication: GASTROOESOPHAGEAL REFLUX DISEASE
     Dosage: 40 MG, 1X/DAY
     Dates: start: 2018
  36. DOXYCYCLINE. [Concomitant]
     Active Substance: DOXYCYCLINE
     Dosage: UNK
     Dates: start: 2016
  37. DIOVAN [Concomitant]
     Active Substance: VALSARTAN
     Indication: HYPERTENSION
     Dosage: UNK
     Dates: start: 2008
  38. PRAVASTATIN. [Concomitant]
     Active Substance: PRAVASTATIN
     Indication: BLOOD CHOLESTEROL ABNORMAL
     Dosage: UNK
     Dates: start: 2018
  39. LEVAQUIN [Concomitant]
     Active Substance: LEVOFLOXACIN
     Indication: INFECTION
     Dosage: UNK
     Dates: start: 2008, end: 2009
  40. NEXIUM [Suspect]
     Active Substance: ESOMEPRAZOLE MAGNESIUM
     Dosage: 40 MG, 1X/DAY
     Dates: end: 2016
  41. PEPCID COMPLETE [Concomitant]
     Active Substance: CALCIUM CARBONATE\FAMOTIDINE\MAGNESIUM HYDROXIDE
     Dosage: UNK
     Dates: start: 2018
  42. TUMS [Concomitant]
     Active Substance: CALCIUM CARBONATE
     Indication: ANTACID THERAPY
     Dosage: UNK, AS NEEDED (2 TO 3 TABLETS)

REACTIONS (3)
  - Renal failure [Not Recovered/Not Resolved]
  - Chronic kidney disease [Not Recovered/Not Resolved]
  - Nephrotic syndrome [Not Recovered/Not Resolved]
